FAERS Safety Report 4335775-3 (Version None)
Quarter: 2004Q2

REPORT INFORMATION
  Report Type: 
  Country: None (occurrence: None)
  Receive Date: 20040406
  Receipt Date: 20040324
  Transmission Date: 20050107
  Serious: Yes (Hospitalization)
  Sender: FDA-Public Use
  Company Number: 03P-062-0237832-02

PATIENT
  Age: 63 Year
  Sex: Female
  Weight: 54 kg

DRUGS (11)
  1. HUMIRA [Suspect]
     Indication: RHEUMATOID ARTHRITIS
     Dosage: 1 IN 2 WK, SUBCUTANEOUS
     Route: 058
     Dates: start: 20001127
  2. PREDNISONE [Concomitant]
  3. LANSOPRAZOLE [Concomitant]
  4. COLECALCIFEROL [Concomitant]
  5. ALLOPURINOL [Concomitant]
  6. METHOTREXATE [Concomitant]
  7. PREDNISONE [Concomitant]
  8. SPIRONOLACTONE [Concomitant]
  9. FOLIC ACID [Concomitant]
  10. DIGOXIN [Concomitant]
  11. COLECALCIFEROL [Concomitant]

REACTIONS (4)
  - CARDIAC FAILURE [None]
  - CARDIAC TAMPONADE [None]
  - PERICARDITIS CONSTRICTIVE [None]
  - SEROSITIS [None]
